FAERS Safety Report 7296256-0 (Version None)
Quarter: 2011Q1

REPORT INFORMATION
  Report Type: 
  Country: None (occurrence: None)
  Receive Date: 20110211
  Receipt Date: 20110211
  Transmission Date: 20110831
  Serious: Yes (Hospitalization)
  Sender: FDA-Public Use
  Company Number: None

PATIENT
  Sex: Female
  Weight: 37.3 kg

DRUGS (2)
  1. ETOPOSIDE [Suspect]
     Dosage: 136 MG
  2. VELCADE [Suspect]
     Dosage: .9 MG

REACTIONS (2)
  - DIARRHOEA [None]
  - DEHYDRATION [None]
